FAERS Safety Report 25924919 (Version 2)
Quarter: 2025Q4

REPORT INFORMATION
  Report Type: Spontaneous
  Country: US (occurrence: US)
  Receive Date: 20251015
  Receipt Date: 20251030
  Transmission Date: 20260118
  Serious: No
  Sender: PHARMING GROUP
  Company Number: US-PHARMING-PHAUS2025001432

PATIENT

DRUGS (1)
  1. JOENJA [Suspect]
     Active Substance: LENIOLISIB PHOSPHATE
     Indication: Encephalitis
     Dosage: UNK

REACTIONS (1)
  - Product prescribing issue [Unknown]
